FAERS Safety Report 7105562-1 (Version None)
Quarter: 2010Q4

REPORT INFORMATION
  Report Type: 
  Country: None (occurrence: None)
  Receive Date: 20101116
  Receipt Date: 20101102
  Transmission Date: 20110411
  Serious: Yes (Other)
  Sender: FDA-Public Use
  Company Number: GB-CELGENEUS-167-C5013-10110301

PATIENT
  Sex: Male
  Weight: 57.7 kg

DRUGS (18)
  1. THALIDOMIDE [Suspect]
     Indication: MULTIPLE MYELOMA
     Route: 048
     Dates: start: 20100315
  2. THALIDOMIDE [Suspect]
     Route: 048
     Dates: start: 20101101, end: 20101102
  3. MELPHALAN HYDROCHLORIDE [Suspect]
     Indication: MULTIPLE MYELOMA
     Route: 065
     Dates: start: 20100315
  4. MELPHALAN HYDROCHLORIDE [Suspect]
     Route: 065
     Dates: start: 20101101, end: 20101102
  5. PREDNISONE [Suspect]
     Indication: MULTIPLE MYELOMA
     Route: 065
     Dates: start: 20100315
  6. PREDNISONE [Suspect]
     Route: 065
     Dates: start: 20101101, end: 20101102
  7. LANSOPRAZOLE [Concomitant]
     Indication: PROPHYLAXIS
     Route: 048
     Dates: start: 20100315
  8. SENNA [Concomitant]
     Indication: CONSTIPATION PROPHYLAXIS
     Route: 048
     Dates: start: 20100315
  9. ASPIRIN [Concomitant]
     Indication: THROMBOSIS PROPHYLAXIS
     Route: 048
     Dates: start: 20100315
  10. LISINOPRIL [Concomitant]
     Indication: HYPERTENSION
     Route: 048
     Dates: start: 20050101
  11. SIMVASTATIN [Concomitant]
     Route: 048
     Dates: start: 20080101
  12. OXYCODONE HCL [Concomitant]
     Indication: BACK PAIN
     Route: 048
     Dates: start: 20100201
  13. SODIUM CLODRONATE [Concomitant]
     Indication: PROPHYLAXIS
     Route: 048
     Dates: start: 20100201
  14. VITAMIN B-12 [Concomitant]
     Route: 030
     Dates: start: 20090201
  15. PARACETAMOL [Concomitant]
     Indication: BACK PAIN
     Route: 048
     Dates: start: 20100201
  16. CALCICHEW D3 FORTE [Concomitant]
     Indication: PROPHYLAXIS
     Dosage: 1.25G + 10MCG
     Route: 048
     Dates: start: 20090101
  17. OXYCONTIN [Concomitant]
     Indication: BACK PAIN
     Route: 048
     Dates: start: 20100201
  18. ACYCLOVIR SODIUM [Concomitant]
     Indication: INFECTION PROPHYLAXIS
     Route: 048
     Dates: start: 20100315

REACTIONS (1)
  - ATRIOVENTRICULAR BLOCK [None]
